FAERS Safety Report 8868053 (Version 1)
Quarter: 2012Q4

REPORT INFORMATION
  Report Type: 
  Country: US (occurrence: US)
  Receive Date: 20121025
  Receipt Date: 20121025
  Transmission Date: 20130627
  Serious: No
  Sender: FDA-Public Use
  Company Number: US-AMGEN-USASP2012019154

PATIENT
  Age: 53 Year
  Sex: Female

DRUGS (11)
  1. ENBREL [Suspect]
     Indication: PRODUCT USED FOR UNKNOWN INDICATION
     Dosage: 50 mg, qwk
     Route: 058
  2. HYDROCODONE/APAP [Concomitant]
  3. QVAR [Concomitant]
     Dosage: 40 mug, UNK
  4. METHOTREXATE [Concomitant]
     Dosage: 2.5 mg, UNK
  5. RELAFEN [Concomitant]
     Dosage: 500 mg, UNK
  6. FOLIC ACID [Concomitant]
     Dosage: 1 mg, UNK
  7. HYDROCHLOROTHIAZIDE [Concomitant]
     Dosage: 25 mg, UNK
  8. SYMBICORT [Concomitant]
  9. VENTOLIN HFA [Concomitant]
  10. PREDNISONE [Concomitant]
     Dosage: 1 mg, UNK
  11. VICODIN [Concomitant]

REACTIONS (1)
  - Nasopharyngitis [Unknown]
